FAERS Safety Report 23243783 (Version 2)
Quarter: 2023Q4

REPORT INFORMATION
  Report Type: Report from Study
  Country: US (occurrence: US)
  Receive Date: 20231130
  Receipt Date: 20231221
  Transmission Date: 20240110
  Serious: Yes (Other)
  Sender: FDA-Public Use
  Company Number: US-ALXN-A202310662AA

PATIENT
  Sex: Male

DRUGS (3)
  1. ULTOMIRIS [Suspect]
     Active Substance: RAVULIZUMAB-CWVZ
     Indication: Myasthenia gravis
     Dosage: UNK
     Route: 065
     Dates: start: 20230815
  2. PREDNISONE [Suspect]
     Active Substance: PREDNISONE
     Indication: Product used for unknown indication
     Dosage: 7 MG, QOD
     Route: 065
  3. MESTINON [Concomitant]
     Active Substance: PYRIDOSTIGMINE BROMIDE
     Indication: Product used for unknown indication
     Dosage: 30 MG, TID
     Route: 065

REACTIONS (8)
  - Type 2 diabetes mellitus [Unknown]
  - Visual impairment [Unknown]
  - Muscle twitching [Unknown]
  - Insomnia [Unknown]
  - Balance disorder [Unknown]
  - Muscular weakness [Unknown]
  - Electric shock sensation [Unknown]
  - Back pain [Unknown]

NARRATIVE: CASE EVENT DATE: 20230816
